FAERS Safety Report 16743921 (Version 3)
Quarter: 2020Q3

REPORT INFORMATION
  Report Type: Spontaneous
  Country: US (occurrence: US)
  Receive Date: 20190827
  Receipt Date: 20200909
  Transmission Date: 20201102
  Serious: Yes (Hospitalization, Other)
  Sender: FDA-Public Use
  Company Number: US-TEVA-2019-US-1096969

PATIENT
  Sex: Female

DRUGS (7)
  1. SYNTHROID [Concomitant]
     Active Substance: LEVOTHYROXINE SODIUM
     Dosage: DAILY
  2. NEURONTIN [Suspect]
     Active Substance: GABAPENTIN
     Indication: BIPOLAR DISORDER
     Dosage: DAILY, STOP DATE WAS 6 WEEKS.
     Route: 065
     Dates: end: 2014
  3. GABAPENTIN. [Suspect]
     Active Substance: GABAPENTIN
     Dosage: DAILY, STOP DATE WAS 6 WEEKS.
     Route: 065
     Dates: start: 2014
  4. PROAIR HFA [Suspect]
     Active Substance: ALBUTEROL SULFATE
     Indication: ASTHMA
     Dosage: 1 PUFF DAILY BUT LATELY I HAVE NEEDED 3 OR 4 PUFFS A DAY
     Route: 065
  5. GENERIC NAVANE [Suspect]
     Active Substance: THIOTHIXENE
     Indication: BIPOLAR DISORDER
     Dosage: DAILY
     Dates: start: 2015, end: 2015
  6. LITHIUM. [Concomitant]
     Active Substance: LITHIUM
  7. QVAR REDIHALER [Suspect]
     Active Substance: BECLOMETHASONE DIPROPIONATE
     Route: 065

REACTIONS (11)
  - Mouth haemorrhage [Recovering/Resolving]
  - Hospitalisation [Unknown]
  - Wound [Recovering/Resolving]
  - Adverse drug reaction [Unknown]
  - Tooth fracture [Recovering/Resolving]
  - Peripheral swelling [Not Recovered/Not Resolved]
  - Dyspnoea [Recovering/Resolving]
  - Parkinsonism [Recovering/Resolving]
  - Asthenia [Recovering/Resolving]
  - Eye pain [Recovering/Resolving]
  - Productive cough [Not Recovered/Not Resolved]
